FAERS Safety Report 11072014 (Version 1)
Quarter: 2015Q2

REPORT INFORMATION
  Report Type: Spontaneous
  Country: US (occurrence: None)
  Receive Date: 20150424
  Receipt Date: 20150424
  Transmission Date: 20150821
  Serious: Yes (Other)
  Sender: FDA-Public Use
  Company Number: US2015GSK037116

PATIENT
  Sex: Male

DRUGS (2)
  1. EPIVIR [Suspect]
     Active Substance: LAMIVUDINE
     Indication: PRODUCT USED FOR UNKNOWN INDICATION
  2. MEPRON [Suspect]
     Active Substance: ATOVAQUONE
     Indication: HIV INFECTION

REACTIONS (3)
  - Brain neoplasm malignant [None]
  - Impaired work ability [None]
  - Neoplasm malignant [None]
